FAERS Safety Report 8955963 (Version 6)
Quarter: 2013Q1

REPORT INFORMATION
  Report Type: Spontaneous
  Country: US (occurrence: US)
  Receive Date: 20121210
  Receipt Date: 20130114
  Transmission Date: 20140127
  Serious: Yes (Life-Threatening, Other)
  Sender: FDA-Public Use
  Company Number: US-JNJFOC-20121203454

PATIENT
  Age: 61 Year
  Sex: Female
  Weight: 72.58 kg

DRUGS (3)
  1. MS PEPCID AC [Suspect]
     Route: 048
  2. MS PEPCID AC [Suspect]
     Indication: DYSPEPSIA
     Dosage: 20-40 MG DAILY
     Route: 048
     Dates: start: 20121030, end: 20121125
  3. HERBAL MEDICINE [Concomitant]
     Dates: start: 199707

REACTIONS (8)
  - Pneumonia [Unknown]
  - Viral infection [Unknown]
  - Respiratory distress [Unknown]
  - Drug hypersensitivity [Recovering/Resolving]
  - Bronchitis [Recovering/Resolving]
  - Hypoaesthesia [Recovering/Resolving]
  - Eating disorder [Unknown]
  - Paraesthesia [Recovering/Resolving]
